FAERS Safety Report 14360735 (Version 1)
Quarter: 2018Q1

REPORT INFORMATION
  Report Type: Report from Study
  Country: US (occurrence: US)
  Receive Date: 20180106
  Receipt Date: 20180106
  Transmission Date: 20180509
  Serious: Yes (Other)
  Sender: FDA-Public Use
  Company Number: PHEH2017US042400

PATIENT
  Sex: Female

DRUGS (1)
  1. COSENTYX [Suspect]
     Active Substance: SECUKINUMAB
     Indication: PRODUCT USED FOR UNKNOWN INDICATION
     Dosage: 150 MG, ONCE EVERY TWO WEEKS
     Route: 058

REACTIONS (4)
  - Inflammation [Unknown]
  - Psoriasis [Unknown]
  - Hepatitis [Unknown]
  - Chronic hepatic failure [Unknown]
